FAERS Safety Report 16716482 (Version 2)
Quarter: 2019Q3

REPORT INFORMATION
  Report Type: Spontaneous
  Country: US (occurrence: US)
  Receive Date: 20190819
  Receipt Date: 20190827
  Transmission Date: 20191005
  Serious: Yes (Hospitalization)
  Sender: FDA-Public Use
  Company Number: US-ABBVIE-19K-163-2889192-00

PATIENT
  Age: 56 Year
  Sex: Male
  Weight: 90 kg

DRUGS (4)
  1. ROTIGOTINE [Suspect]
     Active Substance: ROTIGOTINE
     Indication: PRODUCT USED FOR UNKNOWN INDICATION
     Route: 062
     Dates: start: 20190506, end: 20190715
  2. DUOPA [Suspect]
     Active Substance: CARBIDOPA\LEVODOPA
     Route: 050
     Dates: start: 20190227, end: 2019
  3. DUOPA [Suspect]
     Active Substance: CARBIDOPA\LEVODOPA
     Indication: PARKINSON^S DISEASE
     Dosage: INCREASE OF MORNING DOSE
     Route: 050
     Dates: start: 2019, end: 2019
  4. NEURONTIN [Concomitant]
     Active Substance: GABAPENTIN
     Indication: PRODUCT USED FOR UNKNOWN INDICATION
     Route: 065
     Dates: start: 20190715

REACTIONS (11)
  - Pneumonia [Recovered/Resolved]
  - Impulse-control disorder [Unknown]
  - Bradykinesia [Recovered/Resolved]
  - Product prescribing error [Recovered/Resolved]
  - Gait disturbance [Unknown]
  - On and off phenomenon [Recovered/Resolved]
  - Drug interaction [Unknown]
  - Incorrect dose administered by device [Recovered/Resolved]
  - Drug ineffective [Recovered/Resolved]
  - Stoma site discharge [Recovered/Resolved]
  - Muscle rigidity [Recovered/Resolved]

NARRATIVE: CASE EVENT DATE: 20190601
